FAERS Safety Report 4398304-4 (Version None)
Quarter: 2004Q3

REPORT INFORMATION
  Report Type: 
  Country: None (occurrence: None)
  Receive Date: 20040712
  Receipt Date: 20040601
  Transmission Date: 20050211
  Serious: Yes (Death, Life-Threatening)
  Sender: FDA-Public Use
  Company Number: 2004035646

PATIENT
  Sex: Male

DRUGS (7)
  1. VFEND [Suspect]
     Indication: FUNGAL INFECTION
     Dosage: 400 MG (200 MG, 2 IN 1D) ,ORAL
     Route: 048
     Dates: start: 20031225, end: 20040525
  2. AMPHOTERICIN B [Concomitant]
  3. LEVOFLOXACIN [Concomitant]
  4. UNACID (AMPICILLIN SODIUM, SULBACTAM SODIUM) [Concomitant]
  5. TELICOPLANIN (TEICOPLANIN) [Concomitant]
  6. IMIPENEM (IMIPENEM) [Concomitant]
  7. UNACID (AMPICILLIN SODIUM, SULBACTAM SODIUM) [Concomitant]

REACTIONS (6)
  - DISEASE PROGRESSION [None]
  - HYPOTENSION [None]
  - LOBAR PNEUMONIA [None]
  - REFUSAL OF TREATMENT BY PATIENT [None]
  - RESPIRATORY FAILURE [None]
  - SEPTIC SHOCK [None]
